FAERS Safety Report 18111118 (Version 3)
Quarter: 2020Q4

REPORT INFORMATION
  Report Type: Report from Study
  Country: None (occurrence: US)
  Receive Date: 20200805
  Receipt Date: 20201120
  Transmission Date: 20210113
  Serious: Yes (Hospitalization, Other)
  Sender: FDA-Public Use
  Company Number: US-ABBVIE-20K-163-3394346-00

PATIENT
  Age: 65 Year
  Sex: Female
  Weight: 95.34 kg

DRUGS (3)
  1. HUMIRA [Suspect]
     Active Substance: ADALIMUMAB
     Indication: RHEUMATOID ARTHRITIS
     Route: 058
     Dates: start: 2009
  2. HUMIRA [Suspect]
     Active Substance: ADALIMUMAB
     Route: 058
  3. ASPIRIN. [Concomitant]
     Active Substance: ASPIRIN
     Indication: PRODUCT USED FOR UNKNOWN INDICATION

REACTIONS (4)
  - Arterial occlusive disease [Recovering/Resolving]
  - Weight increased [Recovered/Resolved]
  - Cerebrovascular accident [Recovered/Resolved]
  - Arthralgia [Recovered/Resolved]

NARRATIVE: CASE EVENT DATE: 20191026
